FAERS Safety Report 24964138 (Version 1)
Quarter: 2025Q1

REPORT INFORMATION
  Report Type: Spontaneous
  Country: IN (occurrence: IN)
  Receive Date: 20250213
  Receipt Date: 20250213
  Transmission Date: 20250409
  Serious: Yes (Death)
  Sender: ROCHE
  Company Number: IN-ROCHE-10000122944

PATIENT
  Age: 66 Year
  Sex: Male
  Weight: 73.8 kg

DRUGS (1)
  1. TECENTRIQ [Suspect]
     Active Substance: ATEZOLIZUMAB
     Indication: Neuroendocrine tumour
     Route: 042
     Dates: start: 20231220

REACTIONS (3)
  - Off label use [Unknown]
  - Asthenia [Unknown]
  - Death [Fatal]
